FAERS Safety Report 4815495-9 (Version None)
Quarter: 2005Q4

REPORT INFORMATION
  Report Type: 
  Country: None (occurrence: None)
  Receive Date: 20051028
  Receipt Date: 20051028
  Transmission Date: 20060501
  Serious: Yes (Hospitalization)
  Sender: FDA-Public Use
  Company Number: None

PATIENT
  Age: 67 Year
  Sex: Male

DRUGS (3)
  1. COREG [Suspect]
  2. LOVASTATIN [Suspect]
  3. PLAVIX [Suspect]

REACTIONS (2)
  - HEPATITIS [None]
  - RHABDOMYOLYSIS [None]
